FAERS Safety Report 5812046-7 (Version None)
Quarter: 2008Q3

REPORT INFORMATION
  Report Type: 
  Country: None (occurrence: None)
  Receive Date: 20080716
  Receipt Date: 20080707
  Transmission Date: 20090109
  Serious: Yes (Hospitalization, Other)
  Sender: FDA-Public Use
  Company Number: PHBS2007JP21327

PATIENT
  Age: 61 Year
  Sex: Male
  Weight: 50 kg

DRUGS (1)
  1. VOLTAREN [Suspect]
     Indication: BACK PAIN
     Dosage: 50 MG/DAY
     Route: 048
     Dates: start: 19950101, end: 20050417

REACTIONS (15)
  - ABDOMINAL PAIN UPPER [None]
  - ANAEMIA [None]
  - DUODENAL ULCER [None]
  - ENDOSCOPY [None]
  - GASTRIC DISORDER [None]
  - GASTRIC ULCER HAEMORRHAGE [None]
  - GASTRIC ULCER PERFORATION [None]
  - HAEMATOCRIT DECREASED [None]
  - HAEMOGLOBIN DECREASED [None]
  - HAEMOSTASIS [None]
  - MALAISE [None]
  - MELAENA [None]
  - PALLOR [None]
  - RED BLOOD CELL COUNT DECREASED [None]
  - TENDERNESS [None]
